FAERS Safety Report 8136495-X (Version None)
Quarter: 2012Q1

REPORT INFORMATION
  Report Type: 
  Country: None (occurrence: None)
  Receive Date: 20120214
  Receipt Date: 20120201
  Transmission Date: 20120608
  Serious: Yes (Hospitalization)
  Sender: FDA-Public Use
  Company Number: US-ROCHE-1038379

PATIENT
  Age: 72 Year
  Sex: Female

DRUGS (2)
  1. BLINDED RANIBIZUMAB [Suspect]
     Indication: DIABETIC RETINAL OEDEMA
     Dosage: DATE OF LAST DOSE PRIOR TO SAE 05/JAN/2012
     Route: 050
     Dates: start: 20110601
  2. RANIBIZUMAB [Suspect]
     Indication: DIABETIC RETINAL OEDEMA
     Route: 050

REACTIONS (1)
  - PNEUMONIA [None]
